FAERS Safety Report 14300099 (Version 9)
Quarter: 2022Q1

REPORT INFORMATION
  Report Type: Report from Study
  Country: FR (occurrence: FR)
  Receive Date: 20171219
  Receipt Date: 20220204
  Transmission Date: 20220424
  Serious: Yes (Life-Threatening, Disabling, Other)
  Sender: FDA-Public Use
  Company Number: FR-SHIRE-FR201733736

PATIENT

DRUGS (31)
  1. PEGASPARGASE [Suspect]
     Active Substance: PEGASPARGASE
     Indication: Acute lymphocytic leukaemia
     Dosage: 2175 IU, QD
     Route: 042
     Dates: start: 20171130, end: 20171130
  2. CYCLOPHOSPHAMIDE [Suspect]
     Active Substance: CYCLOPHOSPHAMIDE
     Indication: Acute lymphocytic leukaemia
     Dosage: 880 MG, 1X/DAY:QD
     Route: 042
     Dates: start: 20171116, end: 20171116
  3. VINCRISTINE [Suspect]
     Active Substance: VINCRISTINE
     Indication: Acute lymphocytic leukaemia
     Dosage: 1.3 MG, 1X/DAY:QD
     Route: 042
     Dates: start: 20171130, end: 20171130
  4. CYTARABINE [Suspect]
     Active Substance: CYTARABINE
     Indication: Acute lymphocytic leukaemia
     Dosage: 65 MG, 1X/DAY:QD
     Route: 042
     Dates: start: 20171118, end: 20171128
  5. CYTARABINE [Suspect]
     Active Substance: CYTARABINE
     Dosage: 30 MG, 1X/DAY:QD
     Route: 037
     Dates: start: 20171118, end: 20171118
  6. PURINETHOL [Suspect]
     Active Substance: MERCAPTOPURINE
     Indication: Acute lymphocytic leukaemia
     Dosage: 50 MG, 1X/DAY:QD
     Route: 048
     Dates: start: 20171116, end: 20171129
  7. METHOTREXATE [Suspect]
     Active Substance: METHOTREXATE
     Indication: Acute lymphocytic leukaemia
     Dosage: 12 MG, 1X/DAY:QD
     Route: 037
     Dates: start: 20171118, end: 20171118
  8. HYDROCORTISONE [Suspect]
     Active Substance: HYDROCORTISONE
     Indication: Acute lymphocytic leukaemia
     Dosage: 15 MG, 1X/DAY:QD
     Route: 037
     Dates: start: 20171118, end: 20171118
  9. ZOPHREN                            /00955301/ [Concomitant]
     Indication: Product used for unknown indication
  10. TN UNSPECIFIED [Concomitant]
     Indication: Product used for unknown indication
  11. LARGACTIL                          /00011901/ [Concomitant]
     Indication: Product used for unknown indication
  12. SPASFON                            /00765801/ [Concomitant]
     Indication: Product used for unknown indication
  13. THIAMINE HYDROCHLORIDE [Concomitant]
     Active Substance: THIAMINE HYDROCHLORIDE
     Indication: Product used for unknown indication
  14. BACTRIM [Concomitant]
     Active Substance: SULFAMETHOXAZOLE\TRIMETHOPRIM
     Indication: Infection
  15. PREDNISONE [Concomitant]
     Active Substance: PREDNISONE
     Indication: Product used for unknown indication
  16. MINERAL OIL [Concomitant]
     Active Substance: MINERAL OIL
     Indication: Product used for unknown indication
  17. ATARAX                             /00058401/ [Concomitant]
     Indication: Product used for unknown indication
  18. PYRIDOXINE [Concomitant]
     Active Substance: PYRIDOXINE
     Indication: Product used for unknown indication
  19. URSODIOL [Concomitant]
     Active Substance: URSODIOL
     Indication: Product used for unknown indication
  20. LARGACTIL                          /00011901/ [Concomitant]
     Indication: Neuroleptic malignant syndrome
  21. SUFENTA [Concomitant]
     Active Substance: SUFENTANIL CITRATE
     Indication: Anaesthetic complication
  22. HYPNOVEL                           /00634101/ [Concomitant]
     Indication: Anaesthetic complication
  23. CATAPRESSAN                        /00171101/ [Concomitant]
     Indication: Hypertension
  24. TN UNSPECIFIED [Concomitant]
     Indication: Infection
  25. TN UNSPECIFIED [Concomitant]
     Indication: Hyperthermia
  26. TN UNSPECIFIED [Concomitant]
     Indication: Pain
  27. TN UNSPECIFIED [Concomitant]
     Indication: Anaesthetic complication
  28. TRAMADOL HYDROCHLORIDE [Concomitant]
     Active Substance: TRAMADOL HYDROCHLORIDE
     Indication: Product used for unknown indication
  29. TN UNSPECIFIED [Concomitant]
     Indication: Product used for unknown indication
  30. AMBISOME [Concomitant]
     Active Substance: AMPHOTERICIN B
     Indication: Hyperthermia
  31. CEFTAZIDIME [Concomitant]
     Active Substance: CEFTAZIDIME
     Indication: Hyperthermia
     Dosage: UNK
     Route: 065

REACTIONS (3)
  - Escherichia sepsis [Recovered/Resolved]
  - Pancreatitis acute [Recovered/Resolved with Sequelae]
  - Hyperbilirubinaemia [Recovered/Resolved]

NARRATIVE: CASE EVENT DATE: 20171206
